FAERS Safety Report 5799418-4 (Version None)
Quarter: 2008Q3

REPORT INFORMATION
  Report Type: 
  Country: None (occurrence: None)
  Receive Date: 20080703
  Receipt Date: 20080624
  Transmission Date: 20090109
  Serious: Yes (Other)
  Sender: FDA-Public Use
  Company Number: JP-PFIZER INC-A104419

PATIENT
  Sex: Male
  Weight: 66 kg

DRUGS (4)
  1. VIAGRA [Suspect]
     Indication: ERECTILE DYSFUNCTION
     Route: 048
     Dates: start: 20001007, end: 20001007
  2. FUROSEMIDE [Concomitant]
     Route: 048
  3. CALCIUM CARBONATE [Concomitant]
     Route: 048
  4. OXAROL [Concomitant]

REACTIONS (6)
  - ARRHYTHMIA [None]
  - ERYTHEMA [None]
  - HOT FLUSH [None]
  - MYOCARDIAL INFARCTION [None]
  - VENTRICULAR ARRHYTHMIA [None]
  - VENTRICULAR EXTRASYSTOLES [None]
